FAERS Safety Report 7445347-X (Version None)
Quarter: 2011Q2

REPORT INFORMATION
  Report Type: 
  Country: None (occurrence: None)
  Receive Date: 20110429
  Receipt Date: 20100608
  Transmission Date: 20111010
  Serious: No
  Sender: FDA-Public Use
  Company Number: A0863768A

PATIENT
  Age: 32 Year
  Sex: Female

DRUGS (2)
  1. ZOFRAN [Suspect]
     Indication: HYPEREMESIS GRAVIDARUM
     Route: 065
  2. PROMETHAZINE [Concomitant]

REACTIONS (6)
  - DRUG EXPOSURE DURING PREGNANCY [None]
  - VOMITING IN PREGNANCY [None]
  - MOTION SICKNESS [None]
  - NAUSEA [None]
  - OFF LABEL USE [None]
  - IMPAIRED DRIVING ABILITY [None]
